FAERS Safety Report 6327265-3 (Version None)
Quarter: 2009Q3

REPORT INFORMATION
  Report Type: 
  Country: None (occurrence: None)
  Receive Date: 20090825
  Receipt Date: 20090819
  Transmission Date: 20100115
  Serious: Yes (Hospitalization)
  Sender: FDA-Public Use
  Company Number: US-BAYER-200913255BCC

PATIENT
  Age: 60 Year
  Sex: Male
  Weight: 96 kg

DRUGS (4)
  1. ASPIRIN [Suspect]
     Indication: ARTHRALGIA
     Dosage: TOTAL DAILY DOSE: 325 MG  UNIT DOSE: 325 MG
     Route: 048
     Dates: start: 20090401, end: 20090704
  2. COZAAR [Concomitant]
     Route: 065
  3. HYDROCHLOROTHIAZIDE [Concomitant]
     Route: 065
  4. CLONIDINE PATCH .1 [Concomitant]
     Route: 065

REACTIONS (5)
  - BLOOD PRESSURE DECREASED [None]
  - FATIGUE [None]
  - HEADACHE [None]
  - HYPERAESTHESIA [None]
  - PYREXIA [None]
